FAERS Safety Report 6496669-0 (Version None)
Quarter: 2009Q4

REPORT INFORMATION
  Report Type: 
  Country: None (occurrence: None)
  Receive Date: 20091210
  Receipt Date: 20091124
  Transmission Date: 20100525
  Serious: Yes (Other)
  Sender: FDA-Public Use
  Company Number: BVT-000387

PATIENT
  Sex: Female
  Weight: 81 kg

DRUGS (6)
  1. KINERET [Suspect]
     Indication: RHEUMATOID ARTHRITIS
  2. PREDNISOLONE [Concomitant]
  3. BECOTIDE [Concomitant]
  4. IBRUPROFEN [Concomitant]
  5. SEREVENT [Concomitant]
  6. VENTOLIN [Concomitant]

REACTIONS (4)
  - GASTROINTESTINAL CARCINOMA [None]
  - INFLAMMATION [None]
  - LUNG NEOPLASM [None]
  - OBLITERATIVE BRONCHIOLITIS [None]
